FAERS Safety Report 15192139 (Version 1)
Quarter: 2018Q3

REPORT INFORMATION
  Report Type: Spontaneous
  Country: NL (occurrence: NL)
  Receive Date: 20180724
  Receipt Date: 20180724
  Transmission Date: 20181010
  Serious: Yes (Congenital Anomaly)
  Sender: FDA-Public Use
  Company Number: PHHY2018NL048482

PATIENT
  Age: 19 Week
  Sex: Male

DRUGS (2)
  1. LAMOTRIGINE DISPER [Suspect]
     Active Substance: LAMOTRIGINE
     Indication: FOETAL EXPOSURE DURING PREGNANCY
     Dosage: UNK (MOTHER DOSE: 100 MG, Q12H)
     Route: 064
  2. FOLIUMZUUR [Concomitant]
     Active Substance: FOLIC ACID
     Indication: PRODUCT USED FOR UNKNOWN INDICATION
     Dosage: FOLIUMZUUR VANAF POSITIEVE ZWANGERSCHAPSTEST(5 WEKEN)
     Route: 064

REACTIONS (1)
  - Spina bifida [Not Recovered/Not Resolved]
